FAERS Safety Report 8482387-6 (Version None)
Quarter: 2012Q3

REPORT INFORMATION
  Report Type: 
  Country: None (occurrence: None)
  Receive Date: 20120702
  Receipt Date: 20120620
  Transmission Date: 20120928
  Serious: Yes (Hospitalization)
  Sender: FDA-Public Use
  Company Number: US-GLAXOSMITHKLINE-A0666565A

PATIENT
  Age: 67 Year
  Sex: Male
  Weight: 112.7 kg

DRUGS (8)
  1. GLYBURIDE [Concomitant]
  2. VYTORIN [Concomitant]
  3. NEURONTIN [Concomitant]
  4. METOPROLOL [Concomitant]
  5. AVANDIA [Suspect]
     Indication: TYPE 2 DIABETES MELLITUS
     Dosage: 2MG PER DAY
     Route: 048
     Dates: start: 20000101, end: 20070524
  6. CLONIDINE [Concomitant]
  7. CELEBREX [Concomitant]
  8. LOTREL [Concomitant]

REACTIONS (4)
  - CORONARY ARTERY DISEASE [None]
  - CARDIAC FAILURE CONGESTIVE [None]
  - CARDIAC DISORDER [None]
  - BRAIN STEM INFARCTION [None]
